FAERS Safety Report 6667600-X (Version None)
Quarter: 2010Q2

REPORT INFORMATION
  Report Type: 
  Country: None (occurrence: None)
  Receive Date: 20100405
  Receipt Date: 20100326
  Transmission Date: 20101027
  Serious: Yes (Hospitalization)
  Sender: FDA-Public Use
  Company Number: US-ELI_LILLY_AND_COMPANY-US201001005290

PATIENT
  Sex: Female

DRUGS (7)
  1. ZYPREXA [Suspect]
     Indication: BIPOLAR DISORDER
     Dosage: 10 MG, DAILY (1/D)
     Route: 065
     Dates: start: 20091101, end: 20091201
  2. ZYPREXA [Suspect]
     Dosage: 10 MG, DAILY (1/D)
     Route: 065
     Dates: start: 20091221
  3. DEPAKOTE [Concomitant]
     Dosage: UNK, UNKNOWN
     Route: 065
  4. CLONAZEPAM [Concomitant]
  5. DIVALPROEX SODIUM [Concomitant]
  6. GABAPENTIN [Concomitant]
  7. BENZATROPINE [Concomitant]

REACTIONS (5)
  - ANXIETY [None]
  - EXPIRED DRUG ADMINISTERED [None]
  - INTENTIONAL DRUG MISUSE [None]
  - SUICIDE ATTEMPT [None]
  - WEIGHT INCREASED [None]
